FAERS Safety Report 10039878 (Version 1)
Quarter: 2014Q1

REPORT INFORMATION
  Report Type: Report from Study
  Country: CA (occurrence: CA)
  Receive Date: 20140326
  Receipt Date: 20140326
  Transmission Date: 20141002
  Serious: Yes (Other)
  Sender: FDA-Public Use
  Company Number: CA-JNJFOC-20140311791

PATIENT
  Age: 53 Year
  Sex: Male
  Weight: 100.1 kg

DRUGS (5)
  1. REMICADE [Suspect]
     Indication: CROHN^S DISEASE
     Route: 042
     Dates: start: 20080313
  2. METHOTREXATE [Concomitant]
     Route: 065
  3. CLOZAPINE [Concomitant]
     Route: 065
  4. SEROQUEL [Concomitant]
     Route: 065
  5. TRAZODONE [Concomitant]
     Route: 065

REACTIONS (3)
  - Ileostomy [Recovered/Resolved]
  - Vomiting [Recovered/Resolved]
  - Abdominal pain [Recovered/Resolved]
